FAERS Safety Report 9657768 (Version 2)
Quarter: 2013Q4

REPORT INFORMATION
  Report Type: Report from Study
  Country: US (occurrence: US)
  Receive Date: 20131030
  Receipt Date: 20131105
  Transmission Date: 20140711
  Serious: Yes (Other)
  Sender: FDA-Public Use
  Company Number: US-MERCK-1310USA011823

PATIENT
  Age: 62 Year
  Sex: Male
  Weight: 68.48 kg

DRUGS (12)
  1. BOCEPREVIR [Suspect]
     Indication: HEPATITIS C
     Dosage: 2400 MG, TID
     Route: 048
     Dates: start: 20130605
  2. PEGINTRON [Suspect]
     Indication: HEPATITIS C
     Dosage: 96 MICROGRAM, QW
     Route: 058
     Dates: start: 20130508, end: 20131016
  3. REBETOL [Suspect]
     Indication: HEPATITIS C
     Dosage: 1000 MG, BID
     Route: 048
     Dates: start: 20130508
  4. PRAVASTATIN SODIUM [Concomitant]
  5. ENALAPRIL MALEATE [Concomitant]
  6. LORAZEPAM [Concomitant]
  7. ZOLOFT [Concomitant]
  8. AMBIEN CR [Concomitant]
  9. GLUCOSAMINE [Concomitant]
  10. VITAMINS (UNSPECIFIED) [Concomitant]
  11. RESVERATROL [Concomitant]
  12. IMODIUM [Concomitant]

REACTIONS (1)
  - Neutropenia [Recovered/Resolved]
